FAERS Safety Report 20545538 (Version 3)
Quarter: 2022Q2

REPORT INFORMATION
  Report Type: Report from Study
  Country: MX (occurrence: MX)
  Receive Date: 20220303
  Receipt Date: 20220414
  Transmission Date: 20220721
  Serious: Yes (Hospitalization, Other)
  Sender: FDA-Public Use
  Company Number: MX-NOVARTISPH-NVSC2022MX050320

PATIENT
  Age: 60 Year
  Sex: Female
  Weight: 80 kg

DRUGS (12)
  1. METFORMIN HYDROCHLORIDE\VILDAGLIPTIN [Suspect]
     Active Substance: METFORMIN HYDROCHLORIDE\VILDAGLIPTIN
     Indication: Diabetes mellitus
     Dosage: 1 DOSAGE FORM, BID
     Route: 048
     Dates: start: 2020, end: 20211023
  2. TRAVATAN [Suspect]
     Active Substance: TRAVOPROST
     Indication: Glaucoma
     Dosage: 1 DRP, BID
     Route: 047
  3. TIMOLOL MALEATE\TRAVOPROST [Suspect]
     Active Substance: TIMOLOL MALEATE\TRAVOPROST
     Indication: Glaucoma
     Dosage: 1 DRP, BID
     Route: 047
     Dates: start: 2021
  4. PREGABALIN [Suspect]
     Active Substance: PREGABALIN
     Indication: Diabetic neuropathy
     Dosage: 1 DOSAGE FORM, BID
     Route: 048
     Dates: start: 20211021
  5. PREGABALIN [Suspect]
     Active Substance: PREGABALIN
     Dosage: 1 DOSAGE FORM, QD (2 MONTHS AGO)
     Route: 048
  6. TRAMADOL [Suspect]
     Active Substance: TRAMADOL
     Indication: Diabetic neuropathy
     Dosage: 1 DOSAGE FORM, BID
     Route: 048
     Dates: start: 20211021
  7. TRAMADOL [Suspect]
     Active Substance: TRAMADOL
     Dosage: 1 DOSAGE FORM, QD (2 MONTHS AGO)
     Route: 048
  8. XIGDUO XR [Suspect]
     Active Substance: DAPAGLIFLOZIN PROPANEDIOL\METFORMIN HYDROCHLORIDE
     Indication: Blood glucose increased
     Dosage: 1 DOSAGE FORM, QD
     Route: 048
     Dates: start: 20211021
  9. SOLIQUA 100/33 [Suspect]
     Active Substance: INSULIN GLARGINE\LIXISENATIDE
     Indication: Blood glucose increased
     Dosage: 24 IU, QD
     Route: 059
     Dates: start: 20211021
  10. SOLIQUA 100/33 [Suspect]
     Active Substance: INSULIN GLARGINE\LIXISENATIDE
     Dosage: 24 DOSAGE FORM, QD
     Route: 065
     Dates: start: 20211023
  11. HYALURONATE SODIUM [Concomitant]
     Active Substance: HYALURONATE SODIUM
     Indication: Dacryocystorhinostomy
     Dosage: 1 DRP, TID (10 YEARS AGO)
     Route: 047
  12. EXFORGE HCT [Concomitant]
     Active Substance: AMLODIPINE BESYLATE\HYDROCHLOROTHIAZIDE\VALSARTAN
     Indication: Product used for unknown indication
     Dosage: 1 DOSAGE FORM, QD (10/320/25)
     Route: 048
     Dates: start: 20211023

REACTIONS (8)
  - Blood pressure increased [Recovered/Resolved]
  - Blood glucose increased [Recovered/Resolved]
  - Sedation [Unknown]
  - Somnolence [Unknown]
  - Weight decreased [Not Recovered/Not Resolved]
  - Vomiting [Not Recovered/Not Resolved]
  - Nausea [Not Recovered/Not Resolved]
  - Decreased appetite [Not Recovered/Not Resolved]

NARRATIVE: CASE EVENT DATE: 20211001
